FAERS Safety Report 5533205-7 (Version None)
Quarter: 2007Q4

REPORT INFORMATION
  Report Type: 
  Country: None (occurrence: None)
  Receive Date: 20071130
  Receipt Date: 20071130
  Transmission Date: 20080405
  Serious: Yes (Other)
  Sender: FDA-Public Use
  Company Number: None

PATIENT
  Age: 26 Year
  Sex: Female
  Weight: 106.5953 kg

DRUGS (1)
  1. CYMBALTA [Suspect]
     Indication: DEPRESSION
     Dosage: 60MG 1 TIME DAILY PO
     Route: 048
     Dates: start: 20070201, end: 20071125

REACTIONS (9)
  - DRY MOUTH [None]
  - HORMONE LEVEL ABNORMAL [None]
  - MOOD SWINGS [None]
  - PAIN [None]
  - PHARYNGOLARYNGEAL PAIN [None]
  - POLYCYSTIC OVARIES [None]
  - PYREXIA [None]
  - SKIN IRRITATION [None]
  - WITHDRAWAL SYNDROME [None]
